FAERS Safety Report 22156413 (Version 1)
Quarter: 2023Q1

REPORT INFORMATION
  Report Type: Report from Study
  Country: US (occurrence: US)
  Receive Date: 20230330
  Receipt Date: 20230330
  Transmission Date: 20230418
  Serious: Yes (Hospitalization)
  Sender: FDA-Public Use
  Company Number: US-GILEAD-2023-0620013

PATIENT
  Sex: Female

DRUGS (1)
  1. IDELALISIB [Suspect]
     Active Substance: IDELALISIB
     Indication: Chronic lymphocytic leukaemia recurrent
     Dosage: 100 MG, BID
     Route: 048
     Dates: start: 2020

REACTIONS (3)
  - Malaise [Unknown]
  - Amnesia [Not Recovered/Not Resolved]
  - Off label use [Unknown]
